FAERS Safety Report 22661102 (Version 3)
Quarter: 2023Q4

REPORT INFORMATION
  Report Type: Report from Study
  Country: US (occurrence: US)
  Receive Date: 20230630
  Receipt Date: 20231004
  Transmission Date: 20240109
  Serious: Yes (Hospitalization, Other)
  Sender: FDA-Public Use
  Company Number: US-JAZZ PHARMACEUTICALS-2023-US-011528

PATIENT
  Age: 6 Year
  Sex: Male

DRUGS (3)
  1. EPIDIOLEX [Suspect]
     Active Substance: CANNABIDIOL
     Indication: Epilepsy
     Dosage: 240 MILLIGRAM, BID/2.5 ML BID
     Route: 048
     Dates: start: 20190520
  2. EPIDIOLEX [Suspect]
     Active Substance: CANNABIDIOL
     Dosage: 240 MILLIGRAM, BID/2.5 ML BID
     Route: 048
     Dates: start: 20190520
  3. EPIDIOLEX [Suspect]
     Active Substance: CANNABIDIOL
     Dosage: 2.4 MILLILITER
     Route: 048
     Dates: start: 20190520

REACTIONS (3)
  - Respiratory distress [Unknown]
  - Pneumonia [Recovered/Resolved]
  - Off label use [Unknown]

NARRATIVE: CASE EVENT DATE: 20230411
